FAERS Safety Report 6725554-1 (Version None)
Quarter: 2010Q2

REPORT INFORMATION
  Report Type: 
  Country: None (occurrence: None)
  Receive Date: 20100514
  Receipt Date: 20100504
  Transmission Date: 20101027
  Serious: Yes (Hospitalization)
  Sender: FDA-Public Use
  Company Number: US-PFIZER INC-2010056320

PATIENT
  Age: 55 Year
  Sex: Female
  Weight: 90.4 kg

DRUGS (1)
  1. SUNITINIB MALATE [Suspect]
     Indication: ENDOMETRIAL CANCER
     Dosage: 50 MG, QD, CYCLE 4/2
     Route: 048
     Dates: start: 20091203

REACTIONS (2)
  - CHOLECYSTITIS [None]
  - GALLBLADDER PAIN [None]
